FAERS Safety Report 7349088-9 (Version None)
Quarter: 2011Q1

REPORT INFORMATION
  Report Type: 
  Country: None (occurrence: None)
  Receive Date: 20110314
  Receipt Date: 20110304
  Transmission Date: 20110831
  Serious: Yes (Hospitalization, Disabling)
  Sender: FDA-Public Use
  Company Number: JP-ASTELLAS-2011JP000731

PATIENT
  Age: 3 Year
  Sex: Female
  Weight: 16 kg

DRUGS (20)
  1. LOCOID [Concomitant]
     Dosage: UNK
     Route: 061
     Dates: start: 20081216
  2. PREDNISOLONE [Concomitant]
     Dosage: 20 MG, UNKNOWN/D
     Route: 048
     Dates: start: 20101220, end: 20101227
  3. PREDNISOLONE [Concomitant]
     Dosage: 10 MG, UNKNOWN/D
     Route: 048
     Dates: start: 20110107
  4. WARFARIN [Concomitant]
     Dosage: 0.2 MG, UID/QD
     Route: 048
     Dates: start: 20100812
  5. PROGRAF [Suspect]
     Indication: PROPHYLAXIS AGAINST TRANSPLANT REJECTION
     Dosage: 0.8 MG, BID
     Route: 048
     Dates: start: 20070720
  6. PREDNISOLONE [Concomitant]
     Dosage: 30 MG, UNKNOWN/D
     Route: 048
     Dates: start: 20100731, end: 20100808
  7. PREDNISOLONE [Concomitant]
     Dosage: 10 MG, UNKNOWN/D
     Route: 048
     Dates: start: 20101023, end: 20101125
  8. PREDNISOLONE [Concomitant]
     Dosage: 15 MG, UNKNOWN/D
     Route: 048
     Dates: start: 20101228, end: 20110106
  9. HIRUDOID [Concomitant]
     Dosage: UNK
     Route: 061
     Dates: start: 20081216
  10. PREDNISOLONE [Concomitant]
     Dosage: 30 MG, UNKNOWN/D
     Route: 048
     Dates: start: 20100712, end: 20100714
  11. PREDNISOLONE [Concomitant]
     Dosage: 30 MG, UNKNOWN/D
     Route: 048
     Dates: start: 20100718, end: 20100727
  12. WARFARIN [Concomitant]
     Indication: PORTAL VEIN STENOSIS
     Dosage: 0.2 MG, UID/QD
     Route: 048
     Dates: start: 20070801, end: 20100629
  13. PREDNISOLONE [Concomitant]
     Dosage: 15 MG, UNKNOWN/D
     Route: 048
     Dates: start: 20100809, end: 20100817
  14. PREDNISOLONE [Concomitant]
     Dosage: 8 MG, UNKNOWN/D
     Route: 048
     Dates: start: 20101126, end: 20101219
  15. AMBROXOL HYDROCHLORIDE [Concomitant]
     Dosage: 3.3 MG, TID
     Route: 048
     Dates: start: 20100608, end: 20100629
  16. PREDNISOLONE [Concomitant]
     Indication: PROPHYLAXIS AGAINST TRANSPLANT REJECTION
     Dosage: 15 MG, UID/QD
     Route: 048
     Dates: start: 20070727, end: 20100629
  17. PREDNISOLONE [Concomitant]
     Dosage: 15 MG, UNKNOWN/D
     Route: 048
     Dates: start: 20100930, end: 20101022
  18. MUCODYNE [Concomitant]
     Dosage: 150 MG, TID
     Route: 048
     Dates: start: 20100608, end: 20100629
  19. PREDNISOLONE [Concomitant]
     Dosage: 15 MG, UNKNOWN/D
     Route: 048
     Dates: start: 20100821, end: 20100926
  20. COLD MEDICINE [Concomitant]
     Indication: NASOPHARYNGITIS
     Route: 048

REACTIONS (2)
  - NASOPHARYNGITIS [None]
  - GLOMERULONEPHRITIS RAPIDLY PROGRESSIVE [None]
